FAERS Safety Report 8773846 (Version 1)
Quarter: 2012Q4

REPORT INFORMATION
  Report Type: 
  Country: FR (occurrence: FR)
  Receive Date: 20120907
  Receipt Date: 20120907
  Transmission Date: 20130627
  Serious: Yes (Death)
  Sender: FDA-Public Use
  Company Number: FR-SANOFI-AVENTIS-2012SA062705

PATIENT
  Age: 68 Year
  Sex: Female

DRUGS (9)
  1. LASILIX [Suspect]
     Indication: DRUG USE FOR UNKNOWN INDICATION
     Route: 048
  2. HEMIGOXINE NATIVELLE [Suspect]
     Indication: DRUG USE FOR UNKNOWN INDICATION
     Dosage: 1 DF, 1 in 2 days
     Route: 048
  3. COVERSYL /FRA/ [Suspect]
     Indication: DRUG USE FOR UNKNOWN INDICATION
     Route: 048
     Dates: end: 20110913
  4. BISOPROLOL FUMARATE [Suspect]
     Indication: DRUG USE FOR UNKNOWN INDICATION
     Route: 048
     Dates: end: 20110913
  5. SINTROM [Concomitant]
     Route: 048
  6. NOVONORM [Concomitant]
     Route: 048
  7. CRESTOR /UNK/ [Concomitant]
     Route: 048
  8. INEXIUM [Concomitant]
     Route: 048
  9. BROMAZEPAM [Concomitant]
     Route: 048

REACTIONS (3)
  - Renal failure [Fatal]
  - Hyperkalaemia [Recovered/Resolved]
  - Hypotension [Fatal]
